FAERS Safety Report 5401279-X (Version None)
Quarter: 2007Q3

REPORT INFORMATION
  Report Type: 
  Country: None (occurrence: None)
  Receive Date: 20070726
  Receipt Date: 20070717
  Transmission Date: 20080115
  Serious: Yes (Other)
  Sender: FDA-Public Use
  Company Number: 2007BI003971

PATIENT
  Age: 48 Year
  Sex: Female
  Weight: 73.4827 kg

DRUGS (27)
  1. AVONEX LYOPHILIZED [Suspect]
     Indication: MULTIPLE SCLEROSIS
     Dosage: 30 UG; QW; IM
     Route: 030
     Dates: start: 19980101, end: 20050101
  2. AVONEX [Suspect]
     Indication: MULTIPLE SCLEROSIS
     Dosage: 30 UG; QW; IM
     Route: 030
     Dates: start: 20050101
  3. BACLOFEN [Concomitant]
  4. GLIPIZIDE [Concomitant]
  5. NEURONTIN [Concomitant]
  6. MECLIZINE [Concomitant]
  7. FEXOFENADINE [Concomitant]
  8. NITROSTAT [Concomitant]
  9. DEPAKOTE [Concomitant]
  10. LIOTHYRONINE [Concomitant]
  11. BUSPIRONE HCL [Concomitant]
  12. METOPROLOL SUCCINATE [Concomitant]
  13. FUROSEMIDE [Concomitant]
  14. RANITIDINE [Concomitant]
  15. LIDOCATNE PATCH [Concomitant]
  16. PHENOBARBITAL TAB [Concomitant]
  17. HYDROXYZINE [Concomitant]
  18. LEVOTHYROXINE SODIUM [Concomitant]
  19. EFFEXOR XR [Concomitant]
  20. OXYCODONE HCL [Concomitant]
  21. METFORMIN HCL [Concomitant]
  22. OXYBUTYNIN CHLORIDE [Concomitant]
  23. DIAZEPAM [Concomitant]
  24. FIORICET [Concomitant]
  25. PROMETHAZINE [Concomitant]
  26. PRAVACHOL [Concomitant]
  27. MAXAIR [Concomitant]

REACTIONS (3)
  - LACUNAR INFARCTION [None]
  - MYOCARDIAL INFARCTION [None]
  - REFUSAL OF TREATMENT BY PATIENT [None]
